FAERS Safety Report 23686968 (Version 1)
Quarter: 2024Q1

REPORT INFORMATION
  Report Type: Spontaneous
  Country: IE (occurrence: IE)
  Receive Date: 20240329
  Receipt Date: 20240329
  Transmission Date: 20240410
  Serious: Yes (Other)
  Sender: FDA-Public Use
  Company Number: IE-AMGEN-IRLSP2023159844

PATIENT
  Age: 73 Year
  Sex: Male

DRUGS (2)
  1. ADALIMUMAB [Suspect]
     Active Substance: ADALIMUMAB\ISOPROPYL ALCOHOL
     Indication: Psoriasis
     Dosage: DOSAGE1: UNIT=NOT AVAILABLE
     Route: 058
  2. STELARA [Suspect]
     Active Substance: USTEKINUMAB
     Indication: Psoriasis
     Dosage: UNK
     Route: 058

REACTIONS (1)
  - Lentigo maligna [Unknown]
